FAERS Safety Report 5335905-0 (Version None)
Quarter: 2007Q2

REPORT INFORMATION
  Report Type: 
  Country: None (occurrence: None)
  Receive Date: 20070302
  Receipt Date: 20070110
  Transmission Date: 20071010
  Serious: No
  Sender: FDA-Public Use
  Company Number: PHEH2007US00790

PATIENT
  Age: 74 Year
  Sex: Male

DRUGS (1)
  1. EXJADE [Suspect]
     Indication: IRON OVERLOAD
     Dosage: 1500 MG, QD, ORAL
     Route: 048
     Dates: start: 20060101, end: 20061201

REACTIONS (6)
  - ANOREXIA [None]
  - FATIGUE [None]
  - MALAISE [None]
  - PYREXIA [None]
  - STREPTOCOCCAL INFECTION [None]
  - WEIGHT DECREASED [None]
